FAERS Safety Report 9116717 (Version 2)
Quarter: 2013Q1

REPORT INFORMATION
  Report Type: Spontaneous
  Country: JP (occurrence: JP)
  Receive Date: 20130225
  Receipt Date: 20130313
  Transmission Date: 20140127
  Serious: Yes (Congenital Anomaly)
  Sender: FDA-Public Use
  Company Number: JP-PFIZER INC-2013065896

PATIENT
  Sex: 0

DRUGS (1)
  1. JZOLOFT [Suspect]
     Indication: PANIC DISORDER
     Dosage: 25 MG, 2X/DAY
     Route: 064
     Dates: start: 20101117

REACTIONS (2)
  - Patent ductus arteriosus [Unknown]
  - Maternal exposure during pregnancy [Unknown]
